FAERS Safety Report 4465766-3 (Version None)
Quarter: 2004Q4

REPORT INFORMATION
  Report Type: 
  Country: None (occurrence: None)
  Receive Date: 20041001
  Receipt Date: 20041001
  Transmission Date: 20050328
  Serious: No
  Sender: FDA-Public Use
  Company Number: None

PATIENT
  Sex: Female
  Weight: 47.6277 kg

DRUGS (3)
  1. ACIPHEX [Suspect]
     Indication: DYSPEPSIA
     Dosage: 1-2  DAILY  ORAL
     Route: 048
     Dates: start: 20040202, end: 20040426
  2. PREVACID [Suspect]
     Indication: BACTERIAL INFECTION
     Dosage: 2  DAILY  ORAL
     Route: 048
     Dates: start: 20040503, end: 20040505
  3. PREVACID [Suspect]
     Indication: GASTRIC DISORDER
     Dosage: 2  DAILY  ORAL
     Route: 048
     Dates: start: 20040503, end: 20040505

REACTIONS (9)
  - DRUG INEFFECTIVE [None]
  - DYSGEUSIA [None]
  - DYSPEPSIA [None]
  - GASTROOESOPHAGEAL REFLUX DISEASE [None]
  - HIATUS HERNIA [None]
  - PHARYNGOLARYNGEAL PAIN [None]
  - REFUSAL OF TREATMENT BY PATIENT [None]
  - REGURGITATION OF FOOD [None]
  - THROAT IRRITATION [None]
